FAERS Safety Report 10155784 (Version 2)
Quarter: 2014Q2

REPORT INFORMATION
  Report Type: Report from Study
  Country: CA (occurrence: CA)
  Receive Date: 20140506
  Receipt Date: 20140506
  Transmission Date: 20141212
  Serious: Yes (Hospitalization)
  Sender: FDA-Public Use
  Company Number: CA-BRISTOL-MYERS SQUIBB COMPANY-19156504

PATIENT
  Age: 47 Year
  Sex: Female

DRUGS (3)
  1. ORENCIA [Suspect]
     Indication: RHEUMATOID ARTHRITIS
     Dosage: 1 DF=1000 NO UNITS
     Dates: start: 20130227, end: 2013
  2. ADVAIR [Concomitant]
  3. SPIRIVA [Concomitant]

REACTIONS (1)
  - Appendix disorder [Unknown]
